FAERS Safety Report 6689006-X (Version None)
Quarter: 2010Q2

REPORT INFORMATION
  Report Type: 
  Country: None (occurrence: None)
  Receive Date: 20100420
  Receipt Date: 20100409
  Transmission Date: 20101027
  Serious: Yes (Other)
  Sender: FDA-Public Use
  Company Number: PHHY2010US23388

PATIENT
  Sex: Female

DRUGS (5)
  1. RECLAST [Suspect]
     Dosage: UNK
     Dates: start: 20100101
  2. LEVOTHYROXINE [Suspect]
     Indication: HYPOTHYROIDISM
  3. VERAPAMIL [Concomitant]
     Dosage: 180 MG, UNK
  4. ASPIRIN [Concomitant]
     Dosage: 325 MG, UNK
  5. CLARITIN [Concomitant]
     Indication: HYPOTHYROIDISM

REACTIONS (10)
  - ARTHRALGIA [None]
  - DYSSTASIA [None]
  - GAIT DISTURBANCE [None]
  - HYPERTHYROIDISM [None]
  - MALAISE [None]
  - MUSCLE DISORDER [None]
  - NAUSEA [None]
  - PALPITATIONS [None]
  - PELVIC PAIN [None]
  - WEIGHT DECREASED [None]
